FAERS Safety Report 7730241-7 (Version None)
Quarter: 2011Q3

REPORT INFORMATION
  Report Type: 
  Country: None (occurrence: None)
  Receive Date: 20110906
  Receipt Date: 20110824
  Transmission Date: 20111222
  Serious: Yes (Other)
  Sender: FDA-Public Use
  Company Number: DE-ROCHE-800643

PATIENT
  Sex: Female

DRUGS (3)
  1. AVASTIN [Suspect]
     Dosage: MONO-THERAPY
     Route: 065
  2. CARBOPLATIN [Concomitant]
     Dosage: TOGETHER WITH BEVACIZUMAB
  3. AVASTIN [Suspect]
     Dosage: TOGETHER WITH CARBOPLATIN
     Route: 065

REACTIONS (1)
  - MUCOSAL INFLAMMATION [None]
